FAERS Safety Report 10009765 (Version 1)
Quarter: 2014Q1

REPORT INFORMATION
  Report Type: Spontaneous
  Country: US (occurrence: US)
  Receive Date: 20140312
  Receipt Date: 20140312
  Transmission Date: 20141002
  Serious: No
  Sender: FDA-Public Use
  Company Number: US-INCYTE CORPORATION-2012IN002560

PATIENT
  Sex: 0

DRUGS (1)
  1. JAKAFI [Suspect]
     Dosage: 5 MG, TID
     Route: 048
     Dates: start: 20121109

REACTIONS (2)
  - Micturition frequency decreased [Unknown]
  - Platelet count decreased [Unknown]
